FAERS Safety Report 9565588 (Version 2)
Quarter: 2013Q4

REPORT INFORMATION
  Report Type: Spontaneous
  Country: US (occurrence: US)
  Receive Date: 20130930
  Receipt Date: 20131004
  Transmission Date: 20140711
  Serious: No
  Sender: FDA-Public Use
  Company Number: US-PFIZER INC-2013279832

PATIENT
  Age: 46 Year
  Sex: Female
  Weight: 68.03 kg

DRUGS (5)
  1. LYRICA [Suspect]
     Indication: NERVE COMPRESSION
     Dosage: 50 MG, 3X/DAY
     Dates: start: 2013, end: 201309
  2. LYRICA [Suspect]
     Indication: NEURALGIA
     Dosage: 150 MG, 2X/DAY
     Dates: start: 201309, end: 201309
  3. LYRICA [Suspect]
     Indication: BACK INJURY
  4. LYRICA [Suspect]
     Indication: ARTHRITIS
  5. XANAX [Concomitant]
     Indication: ANXIETY
     Dosage: UNK, AS NEEDED

REACTIONS (10)
  - Urticaria [Unknown]
  - Swelling face [Recovering/Resolving]
  - Rash [Recovered/Resolved]
  - Oedema peripheral [Recovering/Resolving]
  - Joint swelling [Recovering/Resolving]
  - Swelling [Recovering/Resolving]
  - Body surface area increased [Unknown]
  - Weight increased [Unknown]
  - Pain [Unknown]
  - Blister [Unknown]
